FAERS Safety Report 25809784 (Version 2)
Quarter: 2025Q3

REPORT INFORMATION
  Report Type: Spontaneous
  Country: EU (occurrence: EU)
  Receive Date: 20250916
  Receipt Date: 20250917
  Transmission Date: 20251021
  Serious: Yes (Other)
  Sender: BOEHRINGER INGELHEIM
  Company Number: EU-Komodo Health-a23aa00000AC14DAAT

PATIENT
  Age: 60 Year
  Sex: Male

DRUGS (1)
  1. JARDIANCE [Suspect]
     Active Substance: EMPAGLIFLOZIN
     Indication: Product used for unknown indication
     Dosage: PER DAY ONE FILM-COATED TABLET
     Dates: start: 202409

REACTIONS (3)
  - Neoplasm malignant [Not Recovered/Not Resolved]
  - Product residue present [Not Recovered/Not Resolved]
  - Colostomy [Not Recovered/Not Resolved]

NARRATIVE: CASE EVENT DATE: 20250915
